FAERS Safety Report 5427449-2 (Version None)
Quarter: 2007Q3

REPORT INFORMATION
  Report Type: 
  Country: None (occurrence: None)
  Receive Date: 20070824
  Receipt Date: 20070824
  Transmission Date: 20080115
  Serious: Yes (Life-Threatening, Disabling)
  Sender: FDA-Public Use
  Company Number: None

PATIENT
  Age: 57 Year
  Sex: Female
  Weight: 40.8237 kg

DRUGS (9)
  1. MONODOX [Suspect]
     Indication: SKIN INFECTION
     Dosage: 1 BID PO
     Route: 048
     Dates: start: 20070815, end: 20070818
  2. NYSTATIN [Suspect]
     Dosage: 1 BID PO
     Route: 048
     Dates: start: 20070815, end: 20070818
  3. INDERAL LA [Concomitant]
  4. DYAZIDE [Concomitant]
  5. AMILORIDE HYDROCHLORIDE [Concomitant]
  6. POTASSIUM CHLORIDE [Concomitant]
  7. FIORINAL [Concomitant]
  8. CLORAZEPATE [Concomitant]
  9. DIPOTASSIUM [Concomitant]

REACTIONS (8)
  - ABASIA [None]
  - ARTHRALGIA [None]
  - BACK PAIN [None]
  - DIARRHOEA [None]
  - DYSSTASIA [None]
  - FALL [None]
  - NAUSEA [None]
  - VOMITING [None]
